FAERS Safety Report 4466878-0 (Version None)
Quarter: 2004Q4

REPORT INFORMATION
  Report Type: 
  Country: None (occurrence: None)
  Receive Date: 20041006
  Receipt Date: 20040929
  Transmission Date: 20050328
  Serious: Yes (Other)
  Sender: FDA-Public Use
  Company Number: US-JNJFOC-20041000263

PATIENT
  Age: 8 Year
  Sex: Male

DRUGS (2)
  1. RISPERDAL [Suspect]
     Route: 049
     Dates: start: 20020101, end: 20040915
  2. DEPAKOTE [Concomitant]
     Route: 049

REACTIONS (10)
  - AKINESIA [None]
  - CARDIAC PACEMAKER INSERTION [None]
  - CONVULSION [None]
  - DEPRESSED LEVEL OF CONSCIOUSNESS [None]
  - DYSARTHRIA [None]
  - DYSKINESIA [None]
  - INCONTINENCE [None]
  - OPPOSITIONAL DEFIANT DISORDER [None]
  - SOCIAL AVOIDANT BEHAVIOUR [None]
  - TIC [None]
